FAERS Safety Report 6227336-6 (Version None)
Quarter: 2009Q2

REPORT INFORMATION
  Report Type: 
  Country: None (occurrence: None)
  Receive Date: 20090612
  Receipt Date: 20090604
  Transmission Date: 20091009
  Serious: No
  Sender: FDA-Public Use
  Company Number: FR-EISAI INC.-E7273-00073-SPO-FR

PATIENT
  Sex: Male

DRUGS (1)
  1. TARGRETIN [Suspect]
     Dosage: 6 CAPSULES
     Route: 048

REACTIONS (1)
  - SUDDEN HEARING LOSS [None]
